FAERS Safety Report 9674238 (Version 1)
Quarter: 2013Q4

REPORT INFORMATION
  Report Type: Report from Study
  Country: US (occurrence: US)
  Receive Date: 20131107
  Receipt Date: 20131107
  Transmission Date: 20140711
  Serious: Yes (Other)
  Sender: FDA-Public Use
  Company Number: US-ABBVIE-13P-163-1166258-00

PATIENT
  Age: 54 Year
  Sex: Female
  Weight: 86.26 kg

DRUGS (8)
  1. HUMIRA [Suspect]
     Indication: RHEUMATOID ARTHRITIS
     Dates: start: 2005, end: 201307
  2. HUMIRA [Suspect]
     Dates: start: 201307
  3. XANAX [Concomitant]
     Indication: ANXIETY
  4. PRILOSEC [Concomitant]
     Indication: GASTROOESOPHAGEAL REFLUX DISEASE
  5. CELEXA [Concomitant]
     Indication: DEPRESSION
  6. PRINIVIL [Concomitant]
     Indication: HYPERTENSION
  7. HYDROCODONE [Concomitant]
     Indication: PAIN
  8. UNKNOWN MEDICATION [Concomitant]
     Indication: SJOGREN^S SYNDROME

REACTIONS (5)
  - Disability [Not Recovered/Not Resolved]
  - Arthralgia [Not Recovered/Not Resolved]
  - Joint stiffness [Recovering/Resolving]
  - Gait disturbance [Unknown]
  - Ankle fracture [Recovering/Resolving]
